FAERS Safety Report 8352017-2 (Version None)
Quarter: 2012Q2

REPORT INFORMATION
  Report Type: 
  Country: None (occurrence: None)
  Receive Date: 20120510
  Receipt Date: 20120510
  Transmission Date: 20120825
  Serious: Yes (Hospitalization)
  Sender: FDA-Public Use
  Company Number: None

PATIENT
  Age: 71 Year
  Sex: Male
  Weight: 112.1 kg

DRUGS (1)
  1. SULFAMETHOXAZOLE AND TRIMETHOPRIM [Suspect]
     Indication: SINUSITIS
     Dosage: 1 TAB BID PO
     Route: 048
     Dates: start: 20120411, end: 20120412

REACTIONS (4)
  - TREMOR [None]
  - HYPERHIDROSIS [None]
  - ASTHENIA [None]
  - PYREXIA [None]
